FAERS Safety Report 16342075 (Version 4)
Quarter: 2019Q4

REPORT INFORMATION
  Report Type: Report from Study
  Country: BR (occurrence: BR)
  Receive Date: 20190522
  Receipt Date: 20191220
  Transmission Date: 20200122
  Serious: Yes (Hospitalization, Other)
  Sender: FDA-Public Use
  Company Number: BR-ROCHE-2321625

PATIENT
  Age: 50 Year
  Sex: Female
  Weight: 71 kg

DRUGS (17)
  1. XOLAIR [Suspect]
     Active Substance: OMALIZUMAB
     Route: 058
     Dates: start: 20191022
  2. ATROVENT [Concomitant]
     Active Substance: IPRATROPIUM BROMIDE
     Route: 065
  3. XOLAIR [Suspect]
     Active Substance: OMALIZUMAB
     Dosage: (4 YEARS AGO)
     Route: 058
     Dates: start: 2013
  4. XOLAIR [Suspect]
     Active Substance: OMALIZUMAB
     Dosage: UNK
     Route: 058
     Dates: start: 20170913
  5. XOLAIR [Suspect]
     Active Substance: OMALIZUMAB
     Dosage: UNK
     Route: 058
     Dates: start: 20171010, end: 20171010
  6. XOLAIR [Suspect]
     Active Substance: OMALIZUMAB
     Route: 058
     Dates: start: 20190115
  7. RIVOTRIL [Concomitant]
     Active Substance: CLONAZEPAM
     Indication: INSOMNIA
     Dosage: 1 DF, QD
     Route: 048
     Dates: start: 1996
  8. XOLAIR [Suspect]
     Active Substance: OMALIZUMAB
     Indication: ASTHMA
     Dosage: (4 YEARS AGO)
     Route: 058
     Dates: start: 2003
  9. XOLAIR [Suspect]
     Active Substance: OMALIZUMAB
     Dosage: UNK
     Route: 065
     Dates: start: 20180126
  10. ATROVENT [Concomitant]
     Active Substance: IPRATROPIUM BROMIDE
     Indication: ASTHMA
     Dosage: 10 DRP, QD
     Route: 055
     Dates: start: 201710
  11. PREDSIM [Concomitant]
     Active Substance: PREDNISOLONE
     Indication: PRODUCT USED FOR UNKNOWN INDICATION
     Dosage: 1 DF, QD
     Route: 048
  12. XOLAIR [Suspect]
     Active Substance: OMALIZUMAB
     Route: 058
  13. XOLAIR [Suspect]
     Active Substance: OMALIZUMAB
     Route: 058
     Dates: start: 20190222
  14. CLONAZEPAM. [Suspect]
     Active Substance: CLONAZEPAM
     Indication: INSOMNIA
     Dosage: (30 DROPS)
     Route: 065
  15. XOLAIR [Suspect]
     Active Substance: OMALIZUMAB
     Dosage: UNK
     Route: 058
     Dates: start: 20180301
  16. PANTOPRAZOLE [Suspect]
     Active Substance: PANTOPRAZOLE
     Indication: PRODUCT USED FOR UNKNOWN INDICATION
     Route: 065
  17. RIVOTRIL [Concomitant]
     Active Substance: CLONAZEPAM
     Dosage: 35 DROPS DAILY
     Route: 048

REACTIONS (52)
  - Flushing [Unknown]
  - Erythema [Unknown]
  - Pruritus [Recovered/Resolved]
  - Device occlusion [Unknown]
  - Ear discomfort [Unknown]
  - Nodule [Recovered/Resolved]
  - Emphysema [Unknown]
  - Tachycardia [Unknown]
  - Chest pain [Not Recovered/Not Resolved]
  - Deafness [Unknown]
  - Balance disorder [Unknown]
  - Bronchospasm [Unknown]
  - Cyanosis [Unknown]
  - Sneezing [Unknown]
  - Nasal congestion [Unknown]
  - Sensitivity to weather change [Unknown]
  - Nasal obstruction [Unknown]
  - Blood pressure decreased [Unknown]
  - Concomitant disease aggravated [Unknown]
  - Migraine [Unknown]
  - Retching [Unknown]
  - Malaise [Not Recovered/Not Resolved]
  - Pneumonia [Not Recovered/Not Resolved]
  - Bedridden [Unknown]
  - Application site swelling [Unknown]
  - Respiratory rate increased [Unknown]
  - Fatigue [Not Recovered/Not Resolved]
  - Oxygen saturation decreased [Not Recovered/Not Resolved]
  - Coma [Unknown]
  - Sensitisation [Recovered/Resolved]
  - Urinary incontinence [Unknown]
  - Rhinorrhoea [Unknown]
  - Therapeutic response unexpected [Unknown]
  - Headache [Unknown]
  - Wheezing [Unknown]
  - Gastrointestinal disorder [Unknown]
  - Weight decreased [Unknown]
  - Obstructive airways disorder [Unknown]
  - Asthma [Not Recovered/Not Resolved]
  - Anxiety [Unknown]
  - Asthenia [Unknown]
  - Insomnia [Unknown]
  - Gastrooesophageal reflux disease [Unknown]
  - Impaired quality of life [Unknown]
  - Influenza [Unknown]
  - Swelling [Unknown]
  - Nausea [Unknown]
  - Weight increased [Unknown]
  - Dyspnoea [Not Recovered/Not Resolved]
  - Nasal polyps [Unknown]
  - Blindness [Unknown]
  - Abdominal pain [Unknown]

NARRATIVE: CASE EVENT DATE: 2006
